FAERS Safety Report 17064019 (Version 2)
Quarter: 2019Q4

REPORT INFORMATION
  Report Type: Report from Study
  Country: US (occurrence: US)
  Receive Date: 20191122
  Receipt Date: 20191230
  Transmission Date: 20200122
  Serious: Yes (Other)
  Sender: FDA-Public Use
  Company Number: US-ROCHE-2473923

PATIENT
  Age: 45 Year
  Sex: Female

DRUGS (6)
  1. LATUDA [Concomitant]
     Active Substance: LURASIDONE HYDROCHLORIDE
  2. SAPHRIS [Concomitant]
     Active Substance: ASENAPINE MALEATE
  3. OCREVUS [Suspect]
     Active Substance: OCRELIZUMAB
     Indication: RELAPSING-REMITTING MULTIPLE SCLEROSIS
     Dosage: 30/MAY/2019, 13/NOV/2019
     Route: 042
     Dates: start: 20190515
  4. GABAPENTIN. [Concomitant]
     Active Substance: GABAPENTIN
  5. TEGRETOL [Concomitant]
     Active Substance: CARBAMAZEPINE
  6. TRILEPTAL [Concomitant]
     Active Substance: OXCARBAZEPINE

REACTIONS (3)
  - Foot fracture [Recovering/Resolving]
  - Fungal infection [Not Recovered/Not Resolved]
  - Fatigue [Not Recovered/Not Resolved]

NARRATIVE: CASE EVENT DATE: 201910
